FAERS Safety Report 4392317-4 (Version None)
Quarter: 2004Q3

REPORT INFORMATION
  Report Type: 
  Country: None (occurrence: None)
  Receive Date: 20040702
  Receipt Date: 20040226
  Transmission Date: 20050211
  Serious: Yes (Other)
  Sender: FDA-Public Use
  Company Number: 2004UW04077

PATIENT
  Age: 55 Year
  Sex: Female

DRUGS (4)
  1. CRESTOR [Suspect]
     Dosage: 10 MG QD PO
     Route: 048
  2. UNSPECIFIED THYROID MEDICATION [Concomitant]
  3. BLOOD PRESSURE MEDICATION [Concomitant]
  4. DIABETIC MEDICATION [Concomitant]

REACTIONS (2)
  - HYPERSENSITIVITY [None]
  - URTICARIA [None]
